FAERS Safety Report 15620822 (Version 1)
Quarter: 2018Q4

REPORT INFORMATION
  Report Type: Spontaneous
  Country: US (occurrence: US)
  Receive Date: 20181115
  Receipt Date: 20181115
  Transmission Date: 20190205
  Serious: No
  Sender: FDA-Public Use
  Company Number: US-SA-2018SA310304

PATIENT
  Age: 58 Year
  Sex: Female

DRUGS (8)
  1. DUPIXENT [Suspect]
     Active Substance: DUPILUMAB
     Indication: DERMATITIS ATOPIC
     Dosage: 300 MG, QOW
     Route: 058
     Dates: start: 20181023
  2. METHYLPREDNISOLONE. [Concomitant]
     Active Substance: METHYLPREDNISOLONE
  3. CYCLOBENZAPRINE. [Concomitant]
     Active Substance: CYCLOBENZAPRINE
  4. EUCRISA [Concomitant]
     Active Substance: CRISABOROLE
  5. TRAMADOL. [Concomitant]
     Active Substance: TRAMADOL
  6. NAPROXEN. [Concomitant]
     Active Substance: NAPROXEN
  7. OXYCODONE [Concomitant]
     Active Substance: OXYCODONE
  8. ONDANSETRON [Concomitant]
     Active Substance: ONDANSETRON

REACTIONS (3)
  - Injection site swelling [Unknown]
  - Injection site inflammation [Unknown]
  - Injection site erythema [Unknown]

NARRATIVE: CASE EVENT DATE: 20181105
